FAERS Safety Report 7251314-1 (Version None)
Quarter: 2011Q1

REPORT INFORMATION
  Report Type: 
  Country: None (occurrence: None)
  Receive Date: 20110128
  Receipt Date: 20110124
  Transmission Date: 20110831
  Serious: Yes (Other)
  Sender: FDA-Public Use
  Company Number: PT-GILEAD-2011-0035628

PATIENT
  Age: 30 Year
  Sex: Male

DRUGS (1)
  1. TRUVADA [Suspect]
     Indication: HIV INFECTION

REACTIONS (3)
  - FRACTURE [None]
  - OSTEOPOROSIS [None]
  - OSTEONECROSIS [None]
